FAERS Safety Report 4346462-X (Version None)
Quarter: 2004Q2

REPORT INFORMATION
  Report Type: 
  Country: None (occurrence: None)
  Receive Date: 20040426
  Receipt Date: 20030416
  Transmission Date: 20050107
  Serious: No
  Sender: FDA-Public Use
  Company Number: US-BRISTOL-MYERS SQUIBB COMPANY-12244646

PATIENT
  Age: 73 Year
  Sex: Female
  Weight: 72 kg

DRUGS (11)
  1. CARBOPLATIN [Suspect]
     Indication: OVARIAN CANCER
     Dosage: INITIAL DOSE JAN-2000
     Route: 042
     Dates: start: 20020401, end: 20020401
  2. BENADRYL [Concomitant]
     Indication: PREMEDICATION
     Route: 042
  3. KYTRIL [Concomitant]
     Indication: PREMEDICATION
     Route: 042
  4. CIMETIDINE HCL [Concomitant]
     Indication: PREMEDICATION
     Route: 042
  5. ETHYOL [Concomitant]
     Indication: PREMEDICATION
     Route: 042
  6. DEXAMETHASONE [Concomitant]
     Indication: PREMEDICATION
  7. TAXOL [Concomitant]
  8. EVISTA [Concomitant]
  9. PREVACID [Concomitant]
  10. ZOLOFT [Concomitant]
  11. METAMUCIL-2 [Concomitant]

REACTIONS (1)
  - HYPERSENSITIVITY [None]
